FAERS Safety Report 5023885-7 (Version None)
Quarter: 2006Q2

REPORT INFORMATION
  Report Type: 
  Country: None (occurrence: None)
  Receive Date: 20060606
  Receipt Date: 20050223
  Transmission Date: 20061013
  Serious: Yes (Other)
  Sender: FDA-Public Use
  Company Number: CHPA2005US00787

PATIENT
  Age: 78 Year
  Sex: Female
  Weight: 55.8 kg

DRUGS (3)
  1. TRANSDERM SCOP [Suspect]
     Indication: MOTION SICKNESS
     Dosage: 1 PATCH ON THE 17 DEC AND 20 DEC, TRANSDERMAL
     Route: 062
     Dates: start: 20041217, end: 20041221
  2. SYNTHROID [Concomitant]
  3. FOSAMAX [Concomitant]

REACTIONS (5)
  - AMNESIA [None]
  - DISORIENTATION [None]
  - HALLUCINATION [None]
  - MEMORY IMPAIRMENT [None]
  - MENTAL STATUS CHANGES [None]
